FAERS Safety Report 5149386-3 (Version None)
Quarter: 2006Q4

REPORT INFORMATION
  Report Type: 
  Country: None (occurrence: None)
  Receive Date: 20061113
  Receipt Date: 20051212
  Transmission Date: 20070319
  Serious: Yes (Hospitalization)
  Sender: FDA-Public Use
  Company Number: 428723

PATIENT
  Age: 52 Year
  Sex: Male

DRUGS (12)
  1. COREG [Suspect]
     Dosage: 25MG PER DAY
     Route: 048
  2. LIPITOR [Concomitant]
  3. POTASSIUM ACETATE [Concomitant]
  4. ISOSORBIDE [Concomitant]
  5. ASPIRIN [Concomitant]
  6. METOLAZONE [Concomitant]
  7. NORVASC [Concomitant]
  8. DIGOXIN [Concomitant]
  9. LASIX [Concomitant]
  10. SPIRONOLACTONE [Concomitant]
  11. LISINOPRIL [Concomitant]
  12. NOVOLOG [Concomitant]

REACTIONS (3)
  - CARDIAC FAILURE CONGESTIVE [None]
  - PAIN IN EXTREMITY [None]
  - WEIGHT DECREASED [None]
